FAERS Safety Report 12896882 (Version 13)
Quarter: 2021Q4

REPORT INFORMATION
  Report Type: Spontaneous
  Country: US (occurrence: US)
  Receive Date: 20161031
  Receipt Date: 20211011
  Transmission Date: 20220303
  Serious: Yes (Other)
  Sender: FDA-Public Use
  Company Number: US-PFIZER INC-2016502001

PATIENT
  Age: 74 Year
  Sex: Female
  Weight: 68 kg

DRUGS (30)
  1. LYRICA [Suspect]
     Active Substance: PREGABALIN
     Indication: Pain
     Dosage: 100 MG, DAILY [(25 MG 9:00 AM, 25 MG 2:00 PM (MID-DAY), 50 MG 11:00 PM (AT BEDTIME)]
  2. LYRICA [Suspect]
     Active Substance: PREGABALIN
     Indication: Pain in extremity
     Dosage: 25 MG, 4X/DAY (25 MG 9:00 AM, 2:00 PM, 7:00 PM, 11:00 PM)
  3. LYRICA [Suspect]
     Active Substance: PREGABALIN
     Dosage: 5 DF, DAILY (1 AM,1 PM,1  EVENING, 2 BEFORE BED)
  4. LYRICA [Suspect]
     Active Substance: PREGABALIN
     Dosage: 40 MG, DAILY (10MG AM, 10MG PM, 20MG NIGHT TIME)
     Dates: start: 2009
  5. LYRICA [Suspect]
     Active Substance: PREGABALIN
     Dosage: 100 MG, DAILY (1 EVERY MORNING, 1 IN THE EVENING, 2 AT BEDTIME)
  6. LYRICA [Suspect]
     Active Substance: PREGABALIN
     Dosage: 75 MG, DAILY [25MG, 1 IN THE MORNING, 2 AT NIGHT]
  7. LYRICA [Suspect]
     Active Substance: PREGABALIN
     Dosage: 25 MG, 4X/DAY (ONCE IN THE MORNING, ONCE IN THE AFTERNOON, AND TWICE AT NIGHT)
     Route: 048
  8. TRAMADOL [Concomitant]
     Active Substance: TRAMADOL
     Indication: Pain
     Dosage: 100 MG, 4X/DAY
     Dates: start: 2010
  9. TRAMADOL [Concomitant]
     Active Substance: TRAMADOL
     Dosage: 100 MG, 4X/DAY, (2 AM, 2 PM, 2 EVENING, 2 NIGHT)
  10. TRAMADOL [Concomitant]
     Active Substance: TRAMADOL
     Dosage: 400 MG, DAILY
  11. TRAMADOL [Concomitant]
     Active Substance: TRAMADOL
     Dosage: 150 MG, DAILY [50MG, ONE IN THE MORNING, 2 AT NIGHT]
  12. ULTRAM [Concomitant]
     Active Substance: TRAMADOL HYDROCHLORIDE
     Indication: Pain
     Dosage: UNK UNK, AS NEEDED (50MG TABLET TAKE 1-2 TABLETS EVERY 6 HOURS)
  13. LESCOL XL [Concomitant]
     Active Substance: FLUVASTATIN SODIUM
     Indication: Blood cholesterol increased
     Dosage: 80 MG, 1X/DAY [BEFORE BED ]
     Dates: start: 2000
  14. BACLOFEN [Concomitant]
     Active Substance: BACLOFEN
     Dosage: 10 MG, UNK
     Dates: end: 201609
  15. BACLOFEN [Concomitant]
     Active Substance: BACLOFEN
     Dosage: UNK
     Dates: end: 20161004
  16. MYRBETRIQ [Concomitant]
     Active Substance: MIRABEGRON
     Indication: Hypertonic bladder
     Dosage: 50 MG, 2X/DAY (ONE IN THE MORNING AND ONE AT NIGHT)
  17. MYRBETRIQ [Concomitant]
     Active Substance: MIRABEGRON
     Dosage: 25 MG, 1X/DAY
     Route: 048
     Dates: start: 2014
  18. CLONAZEPAM [Concomitant]
     Active Substance: CLONAZEPAM
     Dosage: 5 MG, UNK
  19. KLONOPIN [Concomitant]
     Active Substance: CLONAZEPAM
     Dosage: 0.5 MG, 1X/DAY (AT BEDTIME)
     Route: 048
  20. VITAMIN D [Concomitant]
     Active Substance: VITAMIN D NOS
     Dosage: 5000 IU, 1X/DAY (IN THE MORNING)
     Route: 048
     Dates: start: 2012
  21. CYCLOBENZAPRINE [Concomitant]
     Active Substance: CYCLOBENZAPRINE
     Dosage: 10 MG, 1X/DAY [BEFORE BED ]
     Dates: start: 2016
  22. CYCLOBENZAPRINE [Concomitant]
     Active Substance: CYCLOBENZAPRINE
     Dosage: 10 MG, 1X/DAY
     Dates: start: 20161004
  23. FLEXERIL [Concomitant]
     Active Substance: CYCLOBENZAPRINE HYDROCHLORIDE
     Indication: Pain in extremity
     Dosage: 10 MG, 1X/DAY
     Route: 048
  24. FLEXERIL [Concomitant]
     Active Substance: CYCLOBENZAPRINE HYDROCHLORIDE
     Indication: Myalgia
  25. MOBIC [Concomitant]
     Active Substance: MELOXICAM
     Indication: Pain in extremity
     Dosage: 7.5 MG, AS NEEDED (7.5 MG ONE TAB PER DAY IF NECESSARY)
  26. MOBIC [Concomitant]
     Active Substance: MELOXICAM
     Indication: Pain
     Dosage: 15 MG, AS NEEDED
     Route: 048
  27. PREMARIN [Concomitant]
     Active Substance: ESTROGENS, CONJUGATED
     Dosage: 25 MG, WEEKLY
  28. PREMARIN [Concomitant]
     Active Substance: ESTROGENS, CONJUGATED
     Dosage: 2 G, 1X/DAY (I TAKE A VAGINAL SHOT EVERY SUNDAY NIGHT, 2GM)
  29. COLACE [Concomitant]
     Active Substance: DOCUSATE SODIUM
     Dosage: 100 MG, 2X/DAY (100 MG, ONE IN THE MORNING AND ONE AT NIGHT)
  30. CORN SILK [Concomitant]
     Dosage: UNK, 3X/DAY (3 A DAY, ONE MORNING, ONE AFTER NOON AND ONE AT NIGHT)

REACTIONS (9)
  - Drug dependence [Unknown]
  - Intentional product use issue [Unknown]
  - Insomnia [Recovered/Resolved]
  - Depression [Recovered/Resolved]
  - Muscle contracture [Not Recovered/Not Resolved]
  - Pain in extremity [Not Recovered/Not Resolved]
  - Irritability [Unknown]
  - Dysaesthesia [Not Recovered/Not Resolved]
  - Dyslexia [Unknown]

NARRATIVE: CASE EVENT DATE: 20160101
